FAERS Safety Report 16332601 (Version 8)
Quarter: 2020Q1

REPORT INFORMATION
  Report Type: Spontaneous
  Country: US (occurrence: US)
  Receive Date: 20190520
  Receipt Date: 20200219
  Transmission Date: 20200409
  Serious: No
  Sender: FDA-Public Use
  Company Number: US-PFIZER INC-2018054716

PATIENT
  Age: 63 Year
  Sex: Female
  Weight: 68.27 kg

DRUGS (12)
  1. FRAGMIN [Suspect]
     Active Substance: DALTEPARIN SODIUM
     Dosage: 15,000 IU, DAILY (15,000 IU PER 0.6 ML ONE INJECTION DAILY)
     Dates: start: 2009
  2. FRAGMIN [Suspect]
     Active Substance: DALTEPARIN SODIUM
     Dosage: 15000 IU/0.6 ML, 1X/DAY (EVERY MORNING)
     Route: 058
  3. ENOXAPARIN [Concomitant]
     Active Substance: ENOXAPARIN
     Dosage: UNK
  4. FRAGMIN [Suspect]
     Active Substance: DALTEPARIN SODIUM
     Indication: DEEP VEIN THROMBOSIS
     Dosage: 10000 IU, UNK
     Route: 058
  5. FRAGMIN [Suspect]
     Active Substance: DALTEPARIN SODIUM
     Indication: THROMBOSIS
     Dosage: 15000 IU, DAILY (15,000 IU PER 0.6 ML ONE INJECTION DAILY)
     Route: 058
     Dates: start: 2007
  6. NITROSTAT [Concomitant]
     Active Substance: NITROGLYCERIN
     Dosage: 0.4 MG, AS NEEDED
     Route: 048
  7. FRAGMIN [Suspect]
     Active Substance: DALTEPARIN SODIUM
     Indication: CERVIX CARCINOMA
     Dosage: 0.4 ML (15,000 ANTI-XA UNIT/ 0.6 ML, INJECT 0.4ML AM )
     Route: 058
  8. PREMARIN [Concomitant]
     Active Substance: ESTROGENS, CONJUGATED
     Dosage: 1 G, 2X/DAY
     Route: 067
  9. FRAGMIN [Suspect]
     Active Substance: DALTEPARIN SODIUM
     Indication: THROMBOSIS PROPHYLAXIS
     Dosage: DAILY (15 UNITS, 15,000 0.6MG, INJECTION)
     Route: 033
     Dates: start: 2012, end: 201711
  10. OXYGEN. [Concomitant]
     Active Substance: OXYGEN
     Dosage: UNK
  11. FRAGMIN [Suspect]
     Active Substance: DALTEPARIN SODIUM
     Dosage: DAILY (15,000/0.6 MG)
     Route: 033
  12. HUMIRA [Concomitant]
     Active Substance: ADALIMUMAB
     Indication: RHEUMATOID ARTHRITIS
     Dosage: 40 MG, WEEKLY (40MG INJECTION ONCE A WEEK)
     Route: 058
     Dates: start: 2012

REACTIONS (2)
  - Intentional product misuse [Unknown]
  - Memory impairment [Unknown]

NARRATIVE: CASE EVENT DATE: 2019
